FAERS Safety Report 4883549-7 (Version None)
Quarter: 2006Q1

REPORT INFORMATION
  Report Type: 
  Country: None (occurrence: None)
  Receive Date: 20060117
  Receipt Date: 20060117
  Transmission Date: 20060701
  Serious: Yes (Life-Threatening, Hospitalization, Other)
  Sender: FDA-Public Use
  Company Number: None

PATIENT
  Age: 53 Year
  Sex: Male
  Weight: 124.7392 kg

DRUGS (2)
  1. ADVAIR DISKUS 250/50 [Suspect]
     Indication: ASTHMA
     Dosage: SINGLE INHALATION    AM + PM    INHAL
     Route: 055
     Dates: start: 20060103, end: 20060110
  2. BENICAR [Concomitant]

REACTIONS (1)
  - ATRIAL FIBRILLATION [None]
